FAERS Safety Report 5903635-X (Version None)
Quarter: 2008Q3

REPORT INFORMATION
  Report Type: 
  Country: None (occurrence: None)
  Receive Date: 20080930
  Receipt Date: 20080918
  Transmission Date: 20090109
  Serious: Yes (Other)
  Sender: FDA-Public Use
  Company Number: US-PFIZER INC-2008079615

PATIENT
  Sex: Female

DRUGS (11)
  1. LYRICA [Suspect]
     Indication: NEURALGIA
     Dates: start: 20080801, end: 20080901
  2. LYRICA [Suspect]
     Indication: FIBROMYALGIA
  3. CYMBALTA [Concomitant]
     Indication: NEURALGIA
  4. NEURONTIN [Concomitant]
  5. AMARYL [Concomitant]
  6. METFORMIN HYDROCHLORIDE/SITAGLIPTIN [Concomitant]
  7. MOBIC [Concomitant]
  8. ZANAFLEX [Concomitant]
  9. METHIMAZOLE [Concomitant]
     Indication: HYPERTHYROIDISM
  10. PREVACID [Concomitant]
  11. LUNESTA [Concomitant]

REACTIONS (7)
  - ACTIVITIES OF DAILY LIVING IMPAIRED [None]
  - DYSURIA [None]
  - EYE HAEMORRHAGE [None]
  - HEADACHE [None]
  - RETINOPATHY [None]
  - VISION BLURRED [None]
  - VISUAL ACUITY REDUCED [None]
